FAERS Safety Report 26208877 (Version 1)
Quarter: 2025Q4

REPORT INFORMATION
  Report Type: Spontaneous
  Country: JP (occurrence: JP)
  Receive Date: 20251229
  Receipt Date: 20251229
  Transmission Date: 20260117
  Serious: Yes (Other)
  Sender: ELI LILLY AND COMPANY
  Company Number: JP-NShinyaku-EVA202517434ZZLILLY

PATIENT
  Age: 45 Month
  Sex: Male

DRUGS (2)
  1. TADALAFIL [Suspect]
     Active Substance: TADALAFIL
     Indication: Product used for unknown indication
     Dosage: 15 MG, DAILY
     Route: 048
  2. OPSUMIT [Suspect]
     Active Substance: MACITENTAN
     Indication: Product used for unknown indication
     Dosage: 1.5 MG, DAILY
     Route: 048

REACTIONS (6)
  - Cardiac failure congestive [Unknown]
  - Oxygen saturation decreased [Unknown]
  - Tricuspid valve incompetence [Unknown]
  - Pulmonary arterial pressure increased [Unknown]
  - Haemodynamic instability [Unknown]
  - Off label use [Unknown]
